FAERS Safety Report 7535956-1 (Version None)
Quarter: 2011Q2

REPORT INFORMATION
  Report Type: 
  Country: None (occurrence: None)
  Receive Date: 20110607
  Receipt Date: 20110607
  Transmission Date: 20111010
  Serious: Yes (Other)
  Sender: FDA-Public Use
  Company Number: None

PATIENT
  Sex: Male
  Weight: 73.0291 kg

DRUGS (1)
  1. AVELOX [Suspect]
     Indication: INFECTION
     Dosage: ONE 24 HOURS LESS THAN THREE WEEKS
     Dates: start: 20101119, end: 20101126

REACTIONS (5)
  - MUSCLE SPASMS [None]
  - PARAESTHESIA [None]
  - HYPOAESTHESIA [None]
  - TREMOR [None]
  - MUSCULOSKELETAL STIFFNESS [None]
